FAERS Safety Report 25327966 (Version 1)
Quarter: 2025Q2

REPORT INFORMATION
  Report Type: Spontaneous
  Country: US (occurrence: US)
  Receive Date: 20250518
  Receipt Date: 20250518
  Transmission Date: 20250717
  Serious: No
  Sender: ABBVIE
  Company Number: US-ABBVIE-6275573

PATIENT
  Age: 43 Year
  Sex: Female

DRUGS (2)
  1. BOTOX COSMETIC [Suspect]
     Active Substance: ONABOTULINUMTOXINA
     Indication: Skin wrinkling
     Dosage: STRENGTH: 100 UNIT
     Route: 065
     Dates: start: 20250204, end: 20250204
  2. BENADRYL [Concomitant]
     Active Substance: DIPHENHYDRAMINE HYDROCHLORIDE
     Indication: Product used for unknown indication

REACTIONS (4)
  - Rash macular [Recovering/Resolving]
  - Skin discolouration [Not Recovered/Not Resolved]
  - Papule [Not Recovered/Not Resolved]
  - Injection site papule [Not Recovered/Not Resolved]

NARRATIVE: CASE EVENT DATE: 20250201
